FAERS Safety Report 22265587 (Version 1)
Quarter: 2023Q2

REPORT INFORMATION
  Report Type: Spontaneous
  Country: US (occurrence: None)
  Receive Date: 20230426
  Receipt Date: 20230426
  Transmission Date: 20230722
  Serious: Yes (Hospitalization)
  Sender: FDA-Public Use
  Company Number: None

PATIENT
  Age: 55 Year
  Sex: Female

DRUGS (2)
  1. TACROLIMUS [Suspect]
     Active Substance: TACROLIMUS
     Indication: Stem cell transplant
     Dosage: TAKE 2 CAPSULES BY MOUTH EVERY MORNING AND 1 CAPSULE EVERY EVENING AT 6PM. I?
     Route: 048
     Dates: start: 202302
  2. JAKAFI [Suspect]
     Active Substance: RUXOLITINIB

REACTIONS (1)
  - Acute graft versus host disease [None]

NARRATIVE: CASE EVENT DATE: 20230313
